FAERS Safety Report 25975405 (Version 1)
Quarter: 2025Q4

REPORT INFORMATION
  Report Type: Spontaneous
  Country: US (occurrence: US)
  Receive Date: 20251029
  Receipt Date: 20251029
  Transmission Date: 20260119
  Serious: No
  Sender: TEVA
  Company Number: US-TEVA-VS-3382948

PATIENT
  Age: 45 Year

DRUGS (1)
  1. ATENOLOL [Suspect]
     Active Substance: ATENOLOL
     Indication: Product used for unknown indication
     Route: 048

REACTIONS (1)
  - Paraesthesia [Unknown]
